FAERS Safety Report 17650830 (Version 1)
Quarter: 2020Q2

REPORT INFORMATION
  Report Type: Spontaneous
  Country: US (occurrence: US)
  Receive Date: 20200409
  Receipt Date: 20200409
  Transmission Date: 20200713
  Serious: Yes (Hospitalization)
  Sender: FDA-Public Use
  Company Number: None

PATIENT
  Sex: Male

DRUGS (2)
  1. SPRYCEL [Suspect]
     Active Substance: DASATINIB
     Indication: MYELOID LEUKAEMIA
     Route: 048
     Dates: start: 20190514
  2. BOSULIF [Concomitant]
     Active Substance: BOSUTINIB MONOHYDRATE

REACTIONS (3)
  - White blood cell count decreased [None]
  - Red blood cell count decreased [None]
  - Platelet count decreased [None]
